FAERS Safety Report 18943137 (Version 1)
Quarter: 2021Q1

REPORT INFORMATION
  Report Type: Spontaneous
  Country: US (occurrence: US)
  Receive Date: 20210226
  Receipt Date: 20210226
  Transmission Date: 20210420
  Serious: No
  Sender: FDA-Public Use
  Company Number: US-AMGEN INC.-USASP2021029441

PATIENT
  Sex: Female

DRUGS (19)
  1. AIMOVIG [Suspect]
     Active Substance: ERENUMAB-AOOE
     Indication: PRODUCT USED FOR UNKNOWN INDICATION
     Dosage: UNK
     Route: 065
  2. AMLODIPINE [Concomitant]
     Active Substance: AMLODIPINE BESYLATE
  3. DEPO?SUBQ PROVERA [Concomitant]
     Active Substance: MEDROXYPROGESTERONE ACETATE
  4. ALPRAZOLAM. [Concomitant]
     Active Substance: ALPRAZOLAM
  5. NORETHINDRONE [NORETHISTERONE ACETATE] [Concomitant]
  6. CYMBALTA [Concomitant]
     Active Substance: DULOXETINE HYDROCHLORIDE
  7. PRILOSEC [Concomitant]
     Active Substance: OMEPRAZOLE MAGNESIUM
  8. IBUPROFEN. [Concomitant]
     Active Substance: IBUPROFEN
  9. COUMADIN [Concomitant]
     Active Substance: WARFARIN SODIUM
  10. HUMIRA [Suspect]
     Active Substance: ADALIMUMAB
     Dosage: 40 MILLIGRAM, Q2WK
     Route: 058
  11. NORDITROPIN [Concomitant]
     Active Substance: SOMATROPIN
  12. BACLOFEN. [Concomitant]
     Active Substance: BACLOFEN
  13. FLOVENT [Concomitant]
     Active Substance: FLUTICASONE PROPIONATE
  14. HUMIRA [Suspect]
     Active Substance: ADALIMUMAB
     Indication: RHEUMATOID ARTHRITIS
     Dosage: 40 MILLIGRAM, Q2WK
     Route: 058
  15. LIDOCAINE. [Concomitant]
     Active Substance: LIDOCAINE
  16. ENOXAPARIN SODIUM. [Concomitant]
     Active Substance: ENOXAPARIN SODIUM
  17. LITHIUM CARBONATE. [Concomitant]
     Active Substance: LITHIUM CARBONATE
  18. SULFASALAZINE. [Concomitant]
     Active Substance: SULFASALAZINE
  19. METOPROLOL. [Concomitant]
     Active Substance: METOPROLOL

REACTIONS (2)
  - Thirst [Unknown]
  - Dry mouth [Unknown]
